FAERS Safety Report 13338494 (Version 2)
Quarter: 2021Q3

REPORT INFORMATION
  Report Type: Report from Study
  Country: None (occurrence: CA)
  Receive Date: 20170315
  Receipt Date: 20210802
  Transmission Date: 20211014
  Serious: Yes (Death, Other)
  Sender: FDA-Public Use
  Company Number: CA-ABBVIE-17P-028-1903624-00

PATIENT
  Age: 79 Year
  Sex: Male

DRUGS (1)
  1. LUPRON DEPOT [Suspect]
     Active Substance: LEUPROLIDE ACETATE
     Indication: PROSTATE CANCER
     Route: 058
     Dates: start: 201408, end: 201609

REACTIONS (6)
  - Ureteric stenosis [Not Recovered/Not Resolved]
  - Urinary retention [Not Recovered/Not Resolved]
  - Subdural haematoma [Fatal]
  - Disseminated intravascular coagulation [Fatal]
  - Metastases to bone [Not Recovered/Not Resolved]
  - Prostate cancer stage IV [Not Recovered/Not Resolved]

NARRATIVE: CASE EVENT DATE: 20170220
